FAERS Safety Report 26106716 (Version 1)
Quarter: 2025Q4

REPORT INFORMATION
  Report Type: Spontaneous
  Country: US (occurrence: US)
  Receive Date: 20251201
  Receipt Date: 20251201
  Transmission Date: 20260118
  Serious: Yes (Other)
  Sender: NOVO NORDISK
  Company Number: US-NOVOPROD-1573556

PATIENT
  Age: 82 Year
  Sex: Female

DRUGS (4)
  1. OZEMPIC [Suspect]
     Active Substance: SEMAGLUTIDE
     Indication: Type 2 diabetes mellitus
     Dosage: 0.5 MG, QW
     Route: 058
     Dates: start: 202509
  2. GLIPIZIDE [Concomitant]
     Active Substance: GLIPIZIDE
     Indication: Type 2 diabetes mellitus
     Dosage: UNK
  3. HYOSCYAMINE [Concomitant]
     Active Substance: HYOSCYAMINE
     Indication: Diarrhoea
     Dosage: UNK
  4. HYOSCYAMINE [Concomitant]
     Active Substance: HYOSCYAMINE
     Indication: Lactose intolerance

REACTIONS (8)
  - Colitis [Unknown]
  - Nausea [Recovered/Resolved]
  - Diarrhoea [Recovering/Resolving]
  - Flatulence [Unknown]
  - Abdominal pain [Recovered/Resolved]
  - Bowel movement irregularity [Recovered/Resolved]
  - Weight decreased [Unknown]
  - Off label use [Unknown]

NARRATIVE: CASE EVENT DATE: 20250101
